FAERS Safety Report 4685619-5 (Version None)
Quarter: 2005Q2

REPORT INFORMATION
  Report Type: 
  Country: None (occurrence: None)
  Receive Date: 20050608
  Receipt Date: 20050602
  Transmission Date: 20051028
  Serious: Yes (Life-Threatening, Disabling)
  Sender: FDA-Public Use
  Company Number: US-MERCK-0506USA00620

PATIENT
  Age: 70 Year
  Sex: Male

DRUGS (7)
  1. ZETIA [Suspect]
     Indication: BLOOD CHOLESTEROL INCREASED
     Route: 048
     Dates: end: 20040101
  2. LEXAPRO [Concomitant]
     Route: 065
  3. ATIVAN [Concomitant]
     Route: 065
  4. ALTACE [Concomitant]
     Route: 065
  5. MOBIC [Concomitant]
     Route: 065
  6. VIOXX [Concomitant]
     Route: 065
  7. CELEBREX [Concomitant]
     Route: 065

REACTIONS (1)
  - RENAL FAILURE [None]
